FAERS Safety Report 10396682 (Version 1)
Quarter: 2014Q3

REPORT INFORMATION
  Report Type: Spontaneous
  Country: JP (occurrence: JP)
  Receive Date: 20140820
  Receipt Date: 20140820
  Transmission Date: 20150326
  Serious: Yes (Other)
  Sender: FDA-Public Use
  Company Number: PHHY2013JP161063

PATIENT
  Age: 45 Year
  Sex: Female

DRUGS (2)
  1. NEORAL [Suspect]
     Active Substance: CYCLOSPORINE
     Indication: PUSTULAR PSORIASIS
     Dosage: 3 MG/KG, PER DAY
     Dates: start: 2000
  2. NEORAL [Suspect]
     Active Substance: CYCLOSPORINE
     Dosage: 2.5 MG/KG, PER DAY
     Dates: end: 201304

REACTIONS (3)
  - Arteriosclerosis [Unknown]
  - Blood pressure increased [Recovering/Resolving]
  - Blood creatinine increased [Unknown]

NARRATIVE: CASE EVENT DATE: 201302
